FAERS Safety Report 13075859 (Version 1)
Quarter: 2016Q4

REPORT INFORMATION
  Report Type: Spontaneous
  Country: US (occurrence: US)
  Receive Date: 20161229
  Receipt Date: 20161229
  Transmission Date: 20170207
  Serious: Yes (Disabling)
  Sender: FDA-Public Use
  Company Number: None

PATIENT
  Sex: Female
  Weight: 56.25 kg

DRUGS (6)
  1. LESCOL XL [Suspect]
     Active Substance: FLUVASTATIN SODIUM
     Indication: MYOCARDIAL INFARCTION
     Dosage: ?          QUANTITY:1 TABLET(S);OTHER FREQUENCY:ONCE A WEEK;?
     Route: 048
     Dates: start: 20160828, end: 20161224
  2. VITAMIN C [Concomitant]
     Active Substance: ASCORBIC ACID
  3. BABY ASPIRIN [Concomitant]
     Active Substance: ASPIRIN
  4. LEVOTHYROXIN [Concomitant]
     Active Substance: LEVOTHYROXINE
  5. ACYCLOVIR. [Concomitant]
     Active Substance: ACYCLOVIR
  6. CULTURE 11C PRO-BIOTIC [Concomitant]

REACTIONS (7)
  - Pain [None]
  - Muscular weakness [None]
  - Myalgia [None]
  - Depressed level of consciousness [None]
  - Asthenia [None]
  - Abdominal pain [None]
  - Micturition disorder [None]

NARRATIVE: CASE EVENT DATE: 20161208
